FAERS Safety Report 14631015 (Version 1)
Quarter: 2018Q1

REPORT INFORMATION
  Report Type: Spontaneous
  Country: US (occurrence: US)
  Receive Date: 20180313
  Receipt Date: 20180313
  Transmission Date: 20180509
  Serious: Yes (Other)
  Sender: FDA-Public Use
  Company Number: US-PFIZER INC-2018100297

PATIENT
  Age: 57 Year
  Sex: Male
  Weight: 104.78 kg

DRUGS (1)
  1. LYRICA [Suspect]
     Active Substance: PREGABALIN
     Indication: NEUROPATHY PERIPHERAL
     Dosage: 1 DF, UNK
     Route: 048

REACTIONS (3)
  - Hepatobiliary scan abnormal [Unknown]
  - Gallbladder disorder [Unknown]
  - Nausea [Unknown]
